FAERS Safety Report 25166751 (Version 1)
Quarter: 2025Q2

REPORT INFORMATION
  Report Type: Spontaneous
  Country: US (occurrence: US)
  Receive Date: 20250407
  Receipt Date: 20250407
  Transmission Date: 20250717
  Serious: Yes (Hospitalization)
  Sender: SPARK THERAPEUTICS
  Company Number: US-SPARK THERAPEUTICS, INC.-US-SPK-25-00025

PATIENT
  Age: 54 Year
  Sex: Male

DRUGS (2)
  1. LUXTURNA [Suspect]
     Active Substance: VORETIGENE NEPARVOVEC-RZYL
     Indication: Product used for unknown indication
  2. LUXTURNA [Suspect]
     Active Substance: VORETIGENE NEPARVOVEC-RZYL
     Indication: Product used for unknown indication

REACTIONS (11)
  - Gait inability [Unknown]
  - Cataract [Unknown]
  - Posterior capsule opacification [Unknown]
  - Eye haemorrhage [Unknown]
  - Vertigo [Unknown]
  - Dizziness [Unknown]
  - Discomfort [Unknown]
  - Vision blurred [Unknown]
  - Ill-defined disorder [Unknown]
  - Balance disorder [Unknown]
  - Feeling abnormal [Unknown]

NARRATIVE: CASE EVENT DATE: 20230101
